FAERS Safety Report 5844686-3 (Version None)
Quarter: 2008Q3

REPORT INFORMATION
  Report Type: 
  Country: None (occurrence: None)
  Receive Date: 20080814
  Receipt Date: 20080814
  Transmission Date: 20090109
  Serious: Yes (Other)
  Sender: FDA-Public Use
  Company Number: None

PATIENT
  Age: 69 Year
  Sex: Female
  Weight: 58.9676 kg

DRUGS (1)
  1. HEPARIN [Suspect]
     Indication: CORONARY ARTERY DISEASE
     Dosage: ONCE IV DRIP
     Route: 041
     Dates: start: 20080718, end: 20080718

REACTIONS (3)
  - FLUSHING [None]
  - INFUSION RELATED REACTION [None]
  - PRURITUS [None]
